FAERS Safety Report 9249514 (Version 1)
Quarter: 2013Q2

REPORT INFORMATION
  Report Type: Spontaneous
  Country: US (occurrence: US)
  Receive Date: 20130423
  Receipt Date: 20130423
  Transmission Date: 20140414
  Serious: Yes (Other)
  Sender: FDA-Public Use
  Company Number: US-ELI_LILLY_AND_COMPANY-US201304004476

PATIENT
  Sex: Female

DRUGS (2)
  1. EVISTA [Suspect]
  2. CLONAZEPAM [Concomitant]

REACTIONS (1)
  - Thyroid cancer [Unknown]
